FAERS Safety Report 7127866-9 (Version None)
Quarter: 2010Q4

REPORT INFORMATION
  Report Type: 
  Country: None (occurrence: None)
  Receive Date: 20101029
  Receipt Date: 20100809
  Transmission Date: 20110411
  Serious: No
  Sender: FDA-Public Use
  Company Number: US-003431

PATIENT
  Sex: Male

DRUGS (1)
  1. DEGARELIX [Suspect]
     Dosage: 80 MG THE LAST TWO MONTHS
     Dates: start: 20100601, end: 20100801

REACTIONS (1)
  - INJECTION SITE MASS [None]
